FAERS Safety Report 4543824-2 (Version None)
Quarter: 2004Q4

REPORT INFORMATION
  Report Type: 
  Country: None (occurrence: None)
  Receive Date: 20041229
  Receipt Date: 20041229
  Transmission Date: 20050328
  Serious: Yes (Other)
  Sender: FDA-Public Use
  Company Number: None

PATIENT
  Age: 80 Year
  Sex: Male
  Weight: 63.5036 kg

DRUGS (2)
  1. SALAGEN [Suspect]
     Indication: DRY MOUTH
     Dosage: 1 ORAL
     Route: 048
     Dates: start: 20041120
  2. EVOXAC [Suspect]
     Indication: DRY MOUTH
     Dosage: 1 ORAL
     Route: 048
     Dates: start: 20041203

REACTIONS (3)
  - DYSURIA [None]
  - RENAL PAIN [None]
  - URETHRAL PAIN [None]
